FAERS Safety Report 10070436 (Version 1)
Quarter: 2014Q2

REPORT INFORMATION
  Report Type: Spontaneous
  Country: AU (occurrence: AU)
  Receive Date: 20140410
  Receipt Date: 20140410
  Transmission Date: 20141212
  Serious: Yes (Hospitalization)
  Sender: FDA-Public Use
  Company Number: AU-MYLANLABS-2014S1007474

PATIENT
  Sex: Female

DRUGS (2)
  1. ASMOL [Suspect]
     Indication: ASTHMA
     Route: 055
     Dates: end: 20140325
  2. SERETIDE [Concomitant]
     Indication: ASTHMA
     Dosage: 125/25MG, 2 PUFFS TWICE A DAY VIA SPACER

REACTIONS (2)
  - Drug ineffective [Recovered/Resolved]
  - Pulmonary function test decreased [Recovered/Resolved]
